FAERS Safety Report 8883014 (Version 2)
Quarter: 2013Q2

REPORT INFORMATION
  Report Type: Report from Study
  Country: NZ (occurrence: NZ)
  Receive Date: 20121102
  Receipt Date: 20130517
  Transmission Date: 20140414
  Serious: Yes (Death, Other)
  Sender: FDA-Public Use
  Company Number: PHHY2012NZ099816

PATIENT
  Age: 53 Year
  Sex: Male
  Weight: 60 kg

DRUGS (8)
  1. CLOZARIL [Suspect]
     Indication: SCHIZOPHRENIA
     Dosage: 12.5 MG, UNK
     Route: 048
     Dates: start: 20120802
  2. CLOZARIL [Suspect]
     Dosage: 25 MG, UNK
  3. CLOZARIL [Suspect]
     Dosage: 250 MG
  4. OLANZAPINE [Concomitant]
     Indication: PSYCHOTIC DISORDER
     Dosage: 10 MG, UNK
     Route: 048
  5. OLANZAPINE [Concomitant]
     Dosage: 20 MG
  6. OLANZAPINE [Concomitant]
     Dosage: 15 MG
  7. OLANZAPINE [Concomitant]
     Dosage: 10 MG
  8. RISPERIDONE [Concomitant]
     Indication: SCHIZOPHRENIA
     Dosage: 37.5 MG, TWO WEEKLY
     Route: 030

REACTIONS (14)
  - Respiratory failure [Fatal]
  - Diaphragmatic hernia [Fatal]
  - Blood alcohol increased [Fatal]
  - Antipsychotic drug level above therapeutic [Fatal]
  - Arteriosclerosis coronary artery [Fatal]
  - Arrhythmia [Fatal]
  - Myocarditis [Fatal]
  - Thinking abnormal [Unknown]
  - Anosognosia [Unknown]
  - Thermal burn [Unknown]
  - Dyskinesia [Unknown]
  - Constipation [Unknown]
  - Weight increased [Unknown]
  - Gamma-glutamyltransferase [Unknown]
